FAERS Safety Report 14738372 (Version 1)
Quarter: 2018Q2

REPORT INFORMATION
  Report Type: Spontaneous
  Country: KZ (occurrence: KZ)
  Receive Date: 20180409
  Receipt Date: 20180409
  Transmission Date: 20180711
  Serious: Yes (Death)
  Sender: FDA-Public Use
  Company Number: KZ-BAYER-2018-041064

PATIENT
  Age: 70 Year
  Sex: Female

DRUGS (1)
  1. NEXAVAR [Suspect]
     Active Substance: SORAFENIB
     Indication: METASTATIC RENAL CELL CARCINOMA
     Dosage: UNK
     Dates: start: 201505, end: 201802

REACTIONS (5)
  - Metastases to bone [Fatal]
  - Renal cell carcinoma [Fatal]
  - Metastases to lung [Fatal]
  - Metastases to liver [Fatal]
  - Palmar-plantar erythrodysaesthesia syndrome [Recovered/Resolved]
